FAERS Safety Report 7668328-X (Version None)
Quarter: 2011Q3

REPORT INFORMATION
  Report Type: 
  Country: None (occurrence: None)
  Receive Date: 20110808
  Receipt Date: 20110802
  Transmission Date: 20111222
  Serious: Yes (Death)
  Sender: FDA-Public Use
  Company Number: US-US-EMD SERONO, INC.-7013072

PATIENT
  Sex: Female
  Weight: 57 kg

DRUGS (6)
  1. REBIF [Suspect]
     Indication: MULTIPLE SCLEROSIS
     Route: 058
     Dates: start: 20031210
  2. AMANTADINE HCL [Concomitant]
     Indication: FATIGUE
  3. ZANAFLEX [Concomitant]
     Indication: MUSCLE SPASTICITY
  4. MECLIZINE [Concomitant]
     Indication: DIZZINESS
  5. NEURONTIN [Concomitant]
     Indication: PARAESTHESIA
  6. AVALIDE [Concomitant]

REACTIONS (3)
  - LABILE BLOOD PRESSURE [None]
  - OVARIAN CANCER [None]
  - TOOTH DISORDER [None]
